FAERS Safety Report 7447936-5 (Version None)
Quarter: 2011Q2

REPORT INFORMATION
  Report Type: 
  Country: None (occurrence: None)
  Receive Date: 20110429
  Receipt Date: 20110420
  Transmission Date: 20111010
  Serious: Yes (Other)
  Sender: FDA-Public Use
  Company Number: US-ELI_LILLY_AND_COMPANY-US201104006702

PATIENT
  Age: 60 Year
  Sex: Male

DRUGS (5)
  1. EFFIENT [Suspect]
     Dosage: UNK MG, UNK
     Dates: end: 20110401
  2. ASPIRIN [Concomitant]
     Dosage: 325 MG, UNK
  3. SIMVASTATIN [Concomitant]
     Dosage: 40 MG, UNK
  4. ATENOLOL [Concomitant]
     Dosage: 25 MG, UNK
  5. EFFIENT [Suspect]
     Indication: ACUTE CORONARY SYNDROME
     Dosage: 10 MG, UNK
     Dates: start: 20101012

REACTIONS (1)
  - AGRANULOCYTOSIS [None]
